FAERS Safety Report 7767586-0 (Version None)
Quarter: 2011Q3

REPORT INFORMATION
  Report Type: 
  Country: None (occurrence: None)
  Receive Date: 20110922
  Receipt Date: 20110913
  Transmission Date: 20111222
  Serious: Yes (Other)
  Sender: FDA-Public Use
  Company Number: US-BAYER-2011-014832

PATIENT
  Age: 27 Year
  Sex: Female

DRUGS (3)
  1. IMPLANON [Concomitant]
     Dosage: UNK
  2. DROSPIRENONE AND ETHINYL ESTRADIOL [Suspect]
     Dosage: UNK
     Route: 048
     Dates: start: 20080101, end: 20090101
  3. TRI-SPRINTEC [Concomitant]
     Dosage: UNK
     Dates: start: 20090127

REACTIONS (3)
  - PAIN [None]
  - CHOLECYSTECTOMY [None]
  - CHOLELITHIASIS [None]
